FAERS Safety Report 12916273 (Version 3)
Quarter: 2017Q4

REPORT INFORMATION
  Report Type: Report from Study
  Country: JP (occurrence: JP)
  Receive Date: 20161107
  Receipt Date: 20171117
  Transmission Date: 20180320
  Serious: Yes (Hospitalization, Other)
  Sender: FDA-Public Use
  Company Number: JP-AMGEN-JPNCT2016155816

PATIENT
  Age: 73 Year
  Sex: Male
  Weight: 56 kg

DRUGS (20)
  1. TRAZENTA [Concomitant]
     Active Substance: LINAGLIPTIN
     Indication: DIABETES MELLITUS
     Dosage: 5 MG, UNK
     Route: 048
     Dates: start: 20170325
  2. MEROPENEM. [Concomitant]
     Active Substance: MEROPENEM
     Indication: ENTERITIS INFECTIOUS
     Dosage: 1 G, UNK
     Route: 041
     Dates: start: 20160505, end: 20160508
  3. DARBEPOETIN ALFA [Suspect]
     Active Substance: DARBEPOETIN ALFA
     Dosage: 240 MUG, Q2WK
     Route: 058
     Dates: start: 20150507
  4. DARBEPOETIN ALFA [Suspect]
     Active Substance: DARBEPOETIN ALFA
     Dosage: 240 MUG, UNK
     Route: 058
     Dates: start: 20160913
  5. DARBEPOETIN ALFA [Suspect]
     Active Substance: DARBEPOETIN ALFA
     Dosage: 240 MUG, Q2WK
     Route: 058
     Dates: start: 20161018
  6. EXJADE [Concomitant]
     Active Substance: DEFERASIROX
     Indication: IRON OVERLOAD
     Dosage: 1000 MG, UNK
     Route: 048
     Dates: start: 20150801
  7. DARBEPOETIN ALFA [Suspect]
     Active Substance: DARBEPOETIN ALFA
     Dosage: 240 MUG, Q2WK
     Route: 058
     Dates: start: 20160308
  8. VOGLIBOSE [Concomitant]
     Active Substance: VOGLIBOSE
     Indication: DIABETES MELLITUS
     Dosage: 0.6 MG, UNK
     Route: 048
  9. SENNOSIDE [Concomitant]
     Active Substance: SENNOSIDES
     Indication: CONSTIPATION
     Dosage: 24 MG, UNK
     Route: 048
  10. CEFTRIAXONE SODIUM. [Concomitant]
     Active Substance: CEFTRIAXONE SODIUM
     Dosage: 4 G, UNK
     Route: 042
     Dates: start: 20150429, end: 20150506
  11. DARBEPOETIN ALFA [Suspect]
     Active Substance: DARBEPOETIN ALFA
     Dosage: 240 MUG, Q2WK
     Route: 058
     Dates: start: 20150901
  12. DARBEPOETIN ALFA [Suspect]
     Active Substance: DARBEPOETIN ALFA
     Dosage: 240 MUG, Q2WK
     Route: 058
     Dates: start: 20161129
  13. FAMOTIDINE. [Concomitant]
     Active Substance: FAMOTIDINE
     Indication: GASTRITIS
     Dosage: 20 MG, UNK
     Route: 048
  14. AMLODIPINE [Concomitant]
     Active Substance: AMLODIPINE BESYLATE
     Indication: HYPERTENSION
     Dosage: 2.5 MG, UNK
     Route: 048
  15. MOSAPRIDE CITRATE [Concomitant]
     Active Substance: MOSAPRIDE CITRATE
     Indication: GASTRITIS
     Dosage: 15 MG, UNK
     Route: 048
  16. DARBEPOETIN ALFA [Suspect]
     Active Substance: DARBEPOETIN ALFA
     Indication: MYELODYSPLASTIC SYNDROME
     Dosage: 240 MUG, QD
     Route: 058
     Dates: start: 20150429
  17. DARBEPOETIN ALFA [Suspect]
     Active Substance: DARBEPOETIN ALFA
     Dosage: 240 MUG, Q2WK
     Route: 058
     Dates: start: 20160607
  18. MAGMITT [Concomitant]
     Active Substance: MAGNESIUM OXIDE
     Indication: CONSTIPATION
     Dosage: 1980 MG, UNK
     Route: 048
  19. DARBEPOETIN ALFA [Suspect]
     Active Substance: DARBEPOETIN ALFA
     Dosage: 240 MUG, Q3WK
     Route: 058
     Dates: start: 20160809
  20. METGLUCO [Concomitant]
     Active Substance: METFORMIN HYDROCHLORIDE
     Indication: DIABETES MELLITUS
     Dosage: 500 MG, UNK
     Route: 048

REACTIONS (6)
  - Enteritis infectious [Recovered/Resolved]
  - Enteritis infectious [Recovered/Resolved]
  - Insomnia [Recovering/Resolving]
  - Enteritis infectious [Recovered/Resolved]
  - Enteritis infectious [Recovered/Resolved]
  - Hypertrophic cardiomyopathy [Not Recovered/Not Resolved]

NARRATIVE: CASE EVENT DATE: 20160204
